FAERS Safety Report 6123893-9 (Version None)
Quarter: 2009Q1

REPORT INFORMATION
  Report Type: 
  Country: None (occurrence: None)
  Receive Date: 20090319
  Receipt Date: 20090310
  Transmission Date: 20090719
  Serious: Yes (Hospitalization)
  Sender: FDA-Public Use
  Company Number: FR-BIOGENIDEC-2009BI004030

PATIENT
  Age: 56 Year
  Sex: Male

DRUGS (3)
  1. TYSABRI [Suspect]
     Indication: MULTIPLE SCLEROSIS
     Route: 042
     Dates: start: 20080204, end: 20081223
  2. LIORESAL [Concomitant]
     Indication: MUSCLE SPASTICITY
     Dates: start: 20030627
  3. IMOVANE [Concomitant]

REACTIONS (5)
  - CEREBROVASCULAR DISORDER [None]
  - DEPRESSION [None]
  - HAEMATURIA [None]
  - MICROCYTIC ANAEMIA [None]
  - URINARY TRACT INFECTION [None]
